FAERS Safety Report 6891283-7 (Version None)
Quarter: 2010Q3

REPORT INFORMATION
  Report Type: 
  Country: None (occurrence: None)
  Receive Date: 20100731
  Receipt Date: 20090720
  Transmission Date: 20110219
  Serious: No
  Sender: FDA-Public Use
  Company Number: US-PFIZER INC-2009218291

PATIENT
  Sex: Male
  Weight: 70 kg

DRUGS (4)
  1. LIPITOR [Suspect]
     Indication: BLOOD CHOLESTEROL INCREASED
     Dosage: 10 MG, 1X/DAY
     Route: 048
     Dates: start: 20050101
  2. ATIVAN [Concomitant]
     Dosage: 3-4 MG, 1X/DAY
     Route: 048
  3. ACETYLSALICYLIC ACID [Concomitant]
     Dosage: UNK
     Route: 048
  4. ADVIL LIQUI-GELS [Concomitant]
     Dosage: UNK
     Route: 048

REACTIONS (1)
  - PAIN [None]
